FAERS Safety Report 7599099-3 (Version None)
Quarter: 2011Q3

REPORT INFORMATION
  Report Type: 
  Country: None (occurrence: None)
  Receive Date: 20110711
  Receipt Date: 20110628
  Transmission Date: 20111222
  Serious: Yes (Other)
  Sender: FDA-Public Use
  Company Number: US-BAYER-2011-056121

PATIENT
  Sex: Male

DRUGS (3)
  1. CYMBALTA [Interacting]
     Indication: PRODUCT USED FOR UNKNOWN INDICATION
  2. PREDNISONE [Concomitant]
     Indication: PRODUCT USED FOR UNKNOWN INDICATION
  3. AVELOX [Suspect]
     Indication: CHEST INJURY
     Dosage: 400 MG, QD
     Route: 048

REACTIONS (15)
  - AGEUSIA [None]
  - MUSCULAR WEAKNESS [None]
  - PRURITUS GENERALISED [None]
  - MOBILITY DECREASED [None]
  - DYSURIA [None]
  - INFLUENZA LIKE ILLNESS [None]
  - CONFUSIONAL STATE [None]
  - MENTAL IMPAIRMENT [None]
  - RASH MACULAR [None]
  - HALLUCINATION [None]
  - FATIGUE [None]
  - MIDDLE INSOMNIA [None]
  - RASH [None]
  - THINKING ABNORMAL [None]
  - GAIT DISTURBANCE [None]
